APPROVED DRUG PRODUCT: ISOVUE-250
Active Ingredient: IOPAMIDOL
Strength: 51%
Dosage Form/Route: INJECTABLE;INJECTION
Application: N018735 | Product #007 | TE Code: AP
Applicant: BRACCO DIAGNOSTICS INC
Approved: Jul 6, 1992 | RLD: Yes | RS: Yes | Type: RX

EXCLUSIVITY:
Code: I-975 | Date: Oct 10, 2028